FAERS Safety Report 19739107 (Version 1)
Quarter: 2021Q3

REPORT INFORMATION
  Report Type: Spontaneous
  Country: KR (occurrence: KR)
  Receive Date: 20210823
  Receipt Date: 20210823
  Transmission Date: 20211014
  Serious: Yes (Other)
  Sender: FDA-Public Use
  Company Number: KR-ANIPHARMA-2021-KR-000042

PATIENT
  Age: 75 Year
  Sex: Male

DRUGS (6)
  1. TAMSULOSIN [Concomitant]
     Active Substance: TAMSULOSIN
     Dosage: 0.2 MG DAILY
  2. ALFUZOSIN [Concomitant]
     Active Substance: ALFUZOSIN
     Dosage: 10 MG DAILY
  3. METFORMIN [Concomitant]
     Active Substance: METFORMIN HYDROCHLORIDE
     Dosage: 500 MG DAILY
  4. MEROPENEM. [Concomitant]
     Active Substance: MEROPENEM
     Dosage: 3 GRAMS DAILY
  5. VANCOMYCIN HYDROCHLORIDE (NON?SPECIFIC) [Suspect]
     Active Substance: VANCOMYCIN HYDROCHLORIDE
     Indication: OSTEOMYELITIS
     Dosage: 1.6 GRAMS DAILY
     Route: 042
  6. LOSARTAN. [Concomitant]
     Active Substance: LOSARTAN
     Dosage: 50 MG DAILY

REACTIONS (1)
  - Organising pneumonia [Recovered/Resolved]
